FAERS Safety Report 7803617 (Version 7)
Quarter: 2014Q2

REPORT INFORMATION
  Report Type: Spontaneous
  Country: US (occurrence: US)
  Receive Date: 20110208
  Receipt Date: 20140626
  Transmission Date: 20141212
  Serious: Yes (Other)
  Sender: FDA-Public Use
  Company Number: US-JNJFOC-20110201182

PATIENT
  Age: 37 Year
  Sex: Male

DRUGS (10)
  1. LEVAQUIN [Suspect]
     Indication: BRONCHITIS
     Route: 048
     Dates: start: 199905
  2. LEVAQUIN [Suspect]
     Indication: OTITIS MEDIA ACUTE
     Route: 048
     Dates: start: 199905
  3. LEVAQUIN [Suspect]
     Indication: SINUSITIS
     Route: 048
     Dates: start: 199905
  4. LEVAQUIN [Suspect]
     Indication: RENAL COLIC
     Route: 042
     Dates: start: 20071208
  5. AVELOX [Suspect]
     Indication: SINUSITIS
     Route: 065
     Dates: start: 200205
  6. PREDNISONE [Suspect]
     Indication: BRONCHITIS
     Route: 065
  7. PREDNISONE [Suspect]
     Indication: OTITIS MEDIA ACUTE
     Route: 065
  8. PREDNISONE [Suspect]
     Indication: SINUSITIS
     Route: 065
  9. CIPROFLOXACIN [Suspect]
     Indication: PRODUCT USED FOR UNKNOWN INDICATION
     Route: 048
  10. METHYLPREDNISOLONE [Suspect]
     Indication: PRODUCT USED FOR UNKNOWN INDICATION
     Route: 048

REACTIONS (6)
  - Ligament rupture [Unknown]
  - Ligament rupture [Unknown]
  - Joint instability [Not Recovered/Not Resolved]
  - Ligament laxity [Recovering/Resolving]
  - Tendon rupture [Unknown]
  - Tenosynovitis [Unknown]
